FAERS Safety Report 9231358 (Version 1)
Quarter: 2013Q2

REPORT INFORMATION
  Report Type: Spontaneous
  Country: AR (occurrence: AR)
  Receive Date: 20130415
  Receipt Date: 20130415
  Transmission Date: 20140414
  Serious: Yes (Hospitalization, Other)
  Sender: FDA-Public Use
  Company Number: PHHY2013AR036410

PATIENT
  Sex: Male

DRUGS (1)
  1. DIOVAN [Suspect]
     Indication: HYPERTENSION
     Dosage: 80 MG, DAILY
     Route: 048

REACTIONS (5)
  - Pulmonary oedema [Recovered/Resolved]
  - Pyrexia [Recovered/Resolved]
  - Lung neoplasm malignant [Recovered/Resolved]
  - Hepatic cancer [Recovered/Resolved]
  - Blood pressure increased [Unknown]
